FAERS Safety Report 9770078 (Version 1)
Quarter: 2013Q4

REPORT INFORMATION
  Report Type: Spontaneous
  Country: US (occurrence: US)
  Receive Date: 20131218
  Receipt Date: 20131218
  Transmission Date: 20140711
  Serious: No
  Sender: FDA-Public Use
  Company Number: US-VERTEX PHARMACEUTICALS INC-AE-2011-000976

PATIENT
  Sex: Male
  Weight: 95.46 kg

DRUGS (19)
  1. INCIVEK [Suspect]
     Indication: HEPATITIS C
     Route: 048
     Dates: start: 20110709
  2. PEGASYS [Concomitant]
     Indication: HEPATITIS C
     Route: 058
     Dates: start: 20110709
  3. COPEGUS [Concomitant]
     Indication: HEPATITIS C
     Route: 048
     Dates: start: 20110709
  4. VALIUM [Concomitant]
     Indication: INSOMNIA
     Route: 048
     Dates: start: 2008
  5. FENOFIBRATE [Concomitant]
     Indication: HYPERCHOLESTEROLAEMIA
     Route: 048
     Dates: start: 2008
  6. ZINC GLUCONATE [Concomitant]
     Indication: MINERAL SUPPLEMENTATION
     Route: 048
  7. VITAMIN E [Concomitant]
     Indication: VITAMIN SUPPLEMENTATION
  8. VITAMIN E [Concomitant]
  9. METFORMIN [Concomitant]
  10. FISH OIL [Concomitant]
  11. L GLUTHATHIONE [Concomitant]
  12. N-ACETYL-CYSTEINE [Concomitant]
  13. VITAMIN D3 [Concomitant]
  14. MILK THISTLE [Concomitant]
  15. QUERCETIN [Concomitant]
  16. FOLIC ACID [Concomitant]
  17. SELENIUM [Concomitant]
  18. VITAMIN C [Concomitant]
  19. ALPHA LIPOIC ACID [Concomitant]

REACTIONS (8)
  - Drug dose omission [Recovered/Resolved]
  - Orthostatic hypotension [Recovered/Resolved]
  - Feeling jittery [Not Recovered/Not Resolved]
  - Feeling abnormal [Not Recovered/Not Resolved]
  - Irritability [Not Recovered/Not Resolved]
  - Asthenia [Not Recovered/Not Resolved]
  - White blood cell count decreased [Not Recovered/Not Resolved]
  - Haemoglobin decreased [Not Recovered/Not Resolved]
